FAERS Safety Report 6975626-1 (Version None)
Quarter: 2010Q3

REPORT INFORMATION
  Report Type: 
  Country: None (occurrence: None)
  Receive Date: 20100910
  Receipt Date: 20100902
  Transmission Date: 20110219
  Serious: Yes (Other)
  Sender: FDA-Public Use
  Company Number: KR-JNJFOC-20100902477

PATIENT
  Age: 50 Year
  Sex: Male

DRUGS (2)
  1. OXYBUTYNIN CHLORIDE [Suspect]
     Indication: MICTURITION URGENCY
     Route: 048
  2. OXYBUTYNIN CHLORIDE [Suspect]
     Route: 048

REACTIONS (7)
  - ARTHRALGIA [None]
  - CONSTIPATION [None]
  - DRY MOUTH [None]
  - INSOMNIA [None]
  - LIVER DISORDER [None]
  - MUSCULAR WEAKNESS [None]
  - OROPHARYNGEAL PAIN [None]
